FAERS Safety Report 18359939 (Version 1)
Quarter: 2020Q4

REPORT INFORMATION
  Report Type: Spontaneous
  Country: US (occurrence: US)
  Receive Date: 20201008
  Receipt Date: 20201008
  Transmission Date: 20210114
  Serious: No
  Sender: FDA-Public Use
  Company Number: US-INDIVIOR LIMITED-INDV-122311-2019

PATIENT
  Sex: Female

DRUGS (4)
  1. SUBOXONE [Suspect]
     Active Substance: BUPRENORPHINE HYDROCHLORIDE\NALOXONE HYDROCHLORIDE
     Indication: PRODUCT USED FOR UNKNOWN INDICATION
     Dosage: 8 MILLIGRAM, BID
     Route: 065
  2. SUBOXONE [Suspect]
     Active Substance: BUPRENORPHINE HYDROCHLORIDE\NALOXONE HYDROCHLORIDE
     Dosage: 8 MILLIGRAM, BID
     Route: 065
  3. BUPRENORPHINE/NALOXONE 8 MG TABLET [Suspect]
     Active Substance: BUPRENORPHINE\NALOXONE
     Indication: PRODUCT USED FOR UNKNOWN INDICATION
     Dosage: 8 MILLIGRAM, BID
     Route: 065
  4. BUPRENORPHINE/NALOXONE 8 MG TABLET [Suspect]
     Active Substance: BUPRENORPHINE\NALOXONE
     Dosage: 8 MILLIGRAM, BID
     Route: 065

REACTIONS (3)
  - Oral disorder [Unknown]
  - Stomatitis [Unknown]
  - Inappropriate schedule of product administration [Unknown]
